FAERS Safety Report 12900248 (Version 1)
Quarter: 2016Q4

REPORT INFORMATION
  Report Type: Report from Study
  Country: US (occurrence: US)
  Receive Date: 20161101
  Receipt Date: 20161101
  Transmission Date: 20170207
  Serious: Yes (Death, Hospitalization, Other)
  Sender: FDA-Public Use
  Company Number: US-AMGEN-USASL2016150901

PATIENT
  Age: 66 Year
  Sex: Female

DRUGS (1)
  1. NEUPOGEN [Suspect]
     Active Substance: FILGRASTIM
     Indication: ANAEMIA
     Dosage: UNK UNK, 3 TIMES/WK (THREE TIMES A WEEK)
     Route: 065

REACTIONS (8)
  - Death [Fatal]
  - Off label use [Unknown]
  - Cerebrovascular accident [Unknown]
  - Pneumonia [Unknown]
  - Blood count abnormal [Unknown]
  - Fall [Unknown]
  - Wound [Unknown]
  - Acute myeloid leukaemia [Unknown]

NARRATIVE: CASE EVENT DATE: 2016
